FAERS Safety Report 7319236-5 (Version None)
Quarter: 2011Q1

REPORT INFORMATION
  Report Type: 
  Country: None (occurrence: None)
  Receive Date: 20110228
  Receipt Date: 20110215
  Transmission Date: 20110831
  Serious: Yes (Other)
  Sender: FDA-Public Use
  Company Number: PHHY2010BR45295

PATIENT
  Sex: Female

DRUGS (12)
  1. METOPROLOL TARTRATE [Concomitant]
     Indication: HYPERTENSION
     Dosage: 1 DF, QD
     Route: 048
  2. DIOVAN [Suspect]
     Dosage: UNK
  3. ARADOIS [Concomitant]
     Indication: HYPERTENSION
     Dosage: 1 DF, BID
     Route: 048
  4. LEVOTHYROXINE SODIUM [Concomitant]
     Indication: THYROID DISORDER
     Dosage: 1 DF, QD
     Route: 048
  5. ACETYLSALICYLIC ACID [Concomitant]
     Indication: BLOOD DISORDER
     Dosage: 1 DF, QD
     Route: 048
  6. SIMVASTATIN [Concomitant]
     Indication: BLOOD CHOLESTEROL
     Dosage: 1 DF, QD
     Route: 048
  7. CILOSTAZOL [Concomitant]
     Indication: CARDIOVASCULAR DISORDER
     Dosage: 1 DF, BID
     Route: 048
  8. LIPITOR [Concomitant]
     Indication: BLOOD CHOLESTEROL
     Dosage: 1 DF, QD
     Route: 048
  9. DIURIX [Concomitant]
     Indication: RENAL DISORDER
     Dosage: 1 DF, BID
     Route: 048
  10. ZYLORIC [Concomitant]
     Indication: BLOOD URIC ACID
     Dosage: 1 DF, QD
  11. BETAHISTINE HYDROCHLORIDE [Concomitant]
     Indication: DIZZINESS
     Dosage: 1 DF, QD
     Route: 048
  12. LASIX [Concomitant]
     Indication: RENAL DISORDER
     Dosage: 1 DF, BID
     Route: 048

REACTIONS (2)
  - CARDIAC DISORDER [None]
  - DRUG INEFFECTIVE [None]
